FAERS Safety Report 9044229 (Version 2)
Quarter: 2013Q2

REPORT INFORMATION
  Report Type: Spontaneous
  Country: FR (occurrence: FR)
  Receive Date: 20130130
  Receipt Date: 20130424
  Transmission Date: 20140414
  Serious: Yes (Hospitalization)
  Sender: FDA-Public Use
  Company Number: FR-BRISTOL-MYERS SQUIBB COMPANY-17314295

PATIENT
  Age: 76 Year
  Sex: Male

DRUGS (4)
  1. ORENCIA FOR INJ 250 MG/VIAL [Suspect]
     Dosage: 3 DOSES?DOSE:70MG
     Dates: start: 20121219
  2. YELLOW FEVER VACCINE [Suspect]
     Dosage: STARTED AT 1999
     Route: 030
     Dates: start: 20121218
  3. PREDNISONE [Suspect]
  4. CELESTAMINE [Suspect]
     Dates: start: 20121221

REACTIONS (11)
  - Urticaria [Recovered/Resolved]
  - Hypotension [Recovered/Resolved]
  - Renal failure acute [Recovered/Resolved]
  - Dyspnoea [Recovered/Resolved]
  - Pruritus [Recovered/Resolved]
  - Nasopharyngitis [Recovered/Resolved]
  - Thirst [Recovered/Resolved]
  - Decreased appetite [Recovered/Resolved]
  - Fall [Recovered/Resolved]
  - Confusional state [Recovered/Resolved]
  - Amnesia [Recovered/Resolved]
